FAERS Safety Report 8391966-6 (Version None)
Quarter: 2012Q2

REPORT INFORMATION
  Report Type: 
  Country: None (occurrence: None)
  Receive Date: 20120529
  Receipt Date: 20120521
  Transmission Date: 20120825
  Serious: Yes (Hospitalization)
  Sender: FDA-Public Use
  Company Number: ZA-VIIV HEALTHCARE LIMITED-B0804134A

PATIENT
  Age: 34 Year
  Sex: Male

DRUGS (7)
  1. LAMIVUDINE (EPIVIR HBV) [Suspect]
     Indication: HIV INFECTION
     Route: 065
  2. EFAVIRENZ [Suspect]
     Indication: HIV INFECTION
     Route: 065
  3. RIFAMPICIN [Concomitant]
     Route: 065
  4. PYRAZINAMIDE [Concomitant]
     Route: 065
  5. ISONIAZID [Concomitant]
     Route: 065
  6. ETHAMBUTOL HYDROCHLORIDE [Concomitant]
     Route: 065
  7. STAVUDINE [Suspect]
     Indication: HIV INFECTION
     Route: 065

REACTIONS (15)
  - DYSPNOEA [None]
  - CARDIAC FAILURE [None]
  - IMMUNE RECONSTITUTION SYNDROME [None]
  - DYSPNOEA PAROXYSMAL NOCTURNAL [None]
  - ELECTROCARDIOGRAM T WAVE ABNORMAL [None]
  - ORTHOPNOEA [None]
  - CARDIOGENIC SHOCK [None]
  - SINUS TACHYCARDIA [None]
  - ELECTROCARDIOGRAM QT PROLONGED [None]
  - EJECTION FRACTION DECREASED [None]
  - NIGHT SWEATS [None]
  - OEDEMA PERIPHERAL [None]
  - COUGH [None]
  - ABDOMINAL PAIN [None]
  - CARDIAC HYPERTROPHY [None]
